FAERS Safety Report 8582476-1 (Version None)
Quarter: 2012Q3

REPORT INFORMATION
  Report Type: 
  Country: None (occurrence: None)
  Receive Date: 20120809
  Receipt Date: 20120731
  Transmission Date: 20120928
  Serious: Yes (Hospitalization)
  Sender: FDA-Public Use
  Company Number: FR-JNJFOC-20120802286

PATIENT
  Age: 35 Year
  Sex: Male

DRUGS (9)
  1. REMICADE [Suspect]
     Indication: SPONDYLITIS
     Route: 042
     Dates: start: 20120418
  2. LASIX [Suspect]
     Indication: PRODUCT USED FOR UNKNOWN INDICATION
     Route: 048
     Dates: start: 20120601, end: 20120602
  3. LIDOCAINE [Suspect]
     Indication: PAIN
     Route: 061
     Dates: start: 20120524
  4. REMICADE [Suspect]
     Route: 042
     Dates: start: 20090301
  5. LYRICA [Suspect]
     Indication: PAIN
     Route: 048
     Dates: start: 20120501, end: 20120506
  6. PANTOPRAZOLE SODIUM [Suspect]
     Indication: PRODUCT USED FOR UNKNOWN INDICATION
     Route: 048
     Dates: start: 20120529, end: 20120603
  7. OXYCONTIN LP 10 [Suspect]
     Indication: PAIN
     Route: 048
     Dates: start: 20120523
  8. NEFOPAM [Suspect]
     Indication: PAIN
     Route: 048
     Dates: start: 20120522
  9. OXYCODONE HYDROCHLORIDE [Suspect]
     Indication: PAIN
     Route: 048
     Dates: start: 20120523, end: 20120603

REACTIONS (9)
  - OEDEMA PERIPHERAL [None]
  - HERPES ZOSTER [None]
  - PRURITUS [None]
  - ERYTHEMA [None]
  - RASH MORBILLIFORM [None]
  - RASH [None]
  - PHOTOSENSITIVITY REACTION [None]
  - FEELING HOT [None]
  - BURNING SENSATION [None]
